FAERS Safety Report 10060451 (Version 1)
Quarter: 2014Q2

REPORT INFORMATION
  Report Type: Spontaneous
  Country: DE (occurrence: DE)
  Receive Date: 20140404
  Receipt Date: 20140404
  Transmission Date: 20141212
  Serious: Yes (Congenital Anomaly)
  Sender: FDA-Public Use
  Company Number: DE-PFIZER INC-2014092423

PATIENT
  Sex: Female
  Weight: 3.9 kg

DRUGS (6)
  1. VENLAFAXINE HCL [Suspect]
     Indication: DEPRESSION
     Dosage: MAXIMUM DOSAGE OF 150 MG DAILY (VARYING DOSAGES)
     Route: 064
     Dates: start: 20120505
  2. SINGULAIR [Suspect]
     Indication: ASTHMA
     Dosage: 10 MG, DAILY
     Route: 064
     Dates: start: 20120505, end: 20130201
  3. SYMBICORT [Concomitant]
     Indication: ASTHMA
     Dosage: UNK
     Route: 064
     Dates: start: 20120505, end: 20130201
  4. BEROTEC [Concomitant]
     Indication: ASTHMA
     Dosage: UNK, AS NEEDED
     Route: 064
     Dates: start: 20120505, end: 20130201
  5. LEVOTHYROXIN [Concomitant]
     Indication: HYPOTHYROIDISM
     Dosage: 62.5 UG, DAILY
     Route: 064
     Dates: start: 20120505, end: 20130214
  6. FOL 400 [Concomitant]
     Indication: PROPHYLAXIS OF NEURAL TUBE DEFECT
     Dosage: 0.4 MG, DAILY
     Route: 064
     Dates: start: 20120505, end: 20130214

REACTIONS (2)
  - Maternal exposure during pregnancy [Not Recovered/Not Resolved]
  - Congenital naevus [Not Recovered/Not Resolved]
